FAERS Safety Report 13502191 (Version 1)
Quarter: 2017Q2

REPORT INFORMATION
  Report Type: Spontaneous
  Country: US (occurrence: US)
  Receive Date: 20170502
  Receipt Date: 20170502
  Transmission Date: 20170830
  Serious: No
  Sender: FDA-Public Use
  Company Number: US-ASTRAZENECA-2017SE45751

PATIENT
  Sex: Female

DRUGS (22)
  1. DARVOCET-N 100 [Concomitant]
     Active Substance: ACETAMINOPHEN\PROPOXYPHENE NAPSYLATE
  2. NEURONTIN [Suspect]
     Active Substance: GABAPENTIN
     Route: 065
  3. POTASSIUM [Concomitant]
     Active Substance: POTASSIUM
  4. HCTZ [Concomitant]
     Active Substance: HYDROCHLOROTHIAZIDE
  5. LORTAB [Concomitant]
     Active Substance: ACETAMINOPHEN\HYDROCODONE BITARTRATE
  6. NEXIUM [Suspect]
     Active Substance: ESOMEPRAZOLE MAGNESIUM
     Route: 048
  7. OMEPRAZOLE. [Concomitant]
     Active Substance: OMEPRAZOLE
  8. TRAMADOL. [Concomitant]
     Active Substance: TRAMADOL
     Dosage: 25.0MG AS REQUIRED
  9. CIPROFLOXACIN. [Concomitant]
     Active Substance: CIPROFLOXACIN
  10. ULTRAM [Concomitant]
     Active Substance: TRAMADOL HYDROCHLORIDE
  11. MACROBID [Concomitant]
     Active Substance: NITROFURANTOIN\NITROFURANTOIN MONOHYDRATE
  12. VERAPAMIL [Concomitant]
     Active Substance: VERAPAMIL HYDROCHLORIDE
  13. ELAVIL [Suspect]
     Active Substance: AMITRIPTYLINE HYDROCHLORIDE
     Route: 065
  14. LYRICA [Suspect]
     Active Substance: PREGABALIN
     Route: 048
  15. VITAMIN D [Concomitant]
     Active Substance: CHOLECALCIFEROL
     Dosage: ONCE DAILY WITH MEALS
  16. CALCIUM, MAGNESIUM, ZINC [Concomitant]
     Active Substance: CALCIUM\MAGNESIUM\ZINC
     Dosage: ONE 100 MG TAB EVERY OTHER DAY W/MEALS
  17. PYRIDIUM [Concomitant]
     Active Substance: PHENAZOPYRIDINE
  18. NORVASC [Suspect]
     Active Substance: AMLODIPINE BESYLATE
     Route: 065
  19. LOSARTAN POTASSIUM. [Concomitant]
     Active Substance: LOSARTAN POTASSIUM
  20. VITAMIN B-6 [Concomitant]
     Active Substance: PYRIDOXINE
     Dosage: DAILY
  21. ZENPEP [Concomitant]
     Active Substance: PANCRELIPASE AMYLASE\PANCRELIPASE LIPASE\PANCRELIPASE PROTEASE
     Dosage: 2 CAPS WITH MEALS AND I W/SNACKS
  22. MULTIVITAMIN [Concomitant]
     Active Substance: VITAMINS

REACTIONS (8)
  - Malaise [Unknown]
  - Drug hypersensitivity [Unknown]
  - Asthenia [Unknown]
  - Burning sensation [Unknown]
  - Peripheral swelling [Unknown]
  - Heart rate increased [Unknown]
  - Pain [Unknown]
  - Headache [Unknown]
